FAERS Safety Report 9030580 (Version 2)
Quarter: 2013Q2

REPORT INFORMATION
  Report Type: Spontaneous
  Country: IE (occurrence: IE)
  Receive Date: 20130122
  Receipt Date: 20130523
  Transmission Date: 20140414
  Serious: Yes (Hospitalization, Other)
  Sender: FDA-Public Use
  Company Number: PHFR2005IE01815

PATIENT
  Age: 50 Year
  Sex: Female

DRUGS (7)
  1. CLOZARIL [Suspect]
     Indication: SCHIZOPHRENIA
     Dosage: 525 MG
     Route: 048
     Dates: start: 19950725
  2. CLOZARIL [Suspect]
     Dosage: UNK
     Dates: start: 20010701
  3. CLOZARIL [Suspect]
     Dosage: 625 MG
     Route: 048
     Dates: start: 20050323, end: 20050515
  4. CLOZARIL [Suspect]
     Dosage: 100 MG, BID
     Route: 048
  5. CLOZARIL [Suspect]
     Dosage: 250 MG
     Route: 048
     Dates: start: 20050523
  6. EPILIM CHRONO [Concomitant]
     Indication: EPILEPSY
     Dosage: 800 MG, UNK
     Route: 048
     Dates: start: 20040927
  7. VENLAFAXINE [Concomitant]
     Indication: DEPRESSION
     Dosage: 75 MG, UNK
     Route: 048
     Dates: start: 20040224

REACTIONS (11)
  - Loss of consciousness [Recovered/Resolved]
  - Haemorrhage [Recovered/Resolved]
  - Laceration [Recovered/Resolved]
  - Lip swelling [Recovered/Resolved]
  - Blood uric acid increased [Unknown]
  - Fall [Unknown]
  - Platelet count decreased [Unknown]
  - Blood glucose increased [Unknown]
  - Syncope [Recovered/Resolved]
  - Epilepsy [Unknown]
  - Grand mal convulsion [Recovered/Resolved]
